FAERS Safety Report 6014789-1 (Version None)
Quarter: 2008Q4

REPORT INFORMATION
  Report Type: 
  Country: None (occurrence: None)
  Receive Date: 20081219
  Receipt Date: 20081212
  Transmission Date: 20090506
  Serious: Yes (Other)
  Sender: FDA-Public Use
  Company Number: PHHY2008JP32019

PATIENT
  Age: 60 Year
  Sex: Female

DRUGS (4)
  1. ZOMETA [Suspect]
     Indication: METASTASES TO BONE
     Dosage: 4 MG
     Route: 042
     Dates: start: 20060601, end: 20080101
  2. AREDIA [Suspect]
     Dosage: 90 MG
     Route: 042
     Dates: start: 20060201, end: 20060501
  3. DECADRON                                /CAN/ [Concomitant]
  4. TAXOTERE [Concomitant]

REACTIONS (3)
  - OSTEOMYELITIS [None]
  - OSTEONECROSIS [None]
  - TOOTH EXTRACTION [None]
